FAERS Safety Report 8118543-6 (Version None)
Quarter: 2012Q1

REPORT INFORMATION
  Report Type: 
  Country: None (occurrence: None)
  Receive Date: 20120207
  Receipt Date: 20120201
  Transmission Date: 20120608
  Serious: Yes (Hospitalization)
  Sender: FDA-Public Use
  Company Number: US-AMGEN-USASP2012006876

PATIENT
  Age: 58 Year
  Sex: Female

DRUGS (1)
  1. ENBREL [Suspect]
     Indication: RHEUMATOID ARTHRITIS
     Dosage: 25 MG, 2 TIMES/WK
     Dates: start: 19980101, end: 20110701

REACTIONS (5)
  - LIVER FUNCTION TEST ABNORMAL [None]
  - VARICES OESOPHAGEAL [None]
  - PAIN IN EXTREMITY [None]
  - HAEMATOCHEZIA [None]
  - BLOOD COUNT ABNORMAL [None]
